FAERS Safety Report 4648186-8 (Version None)
Quarter: 2005Q2

REPORT INFORMATION
  Report Type: 
  Country: None (occurrence: None)
  Receive Date: 20050331
  Receipt Date: 20050111
  Transmission Date: 20051028
  Serious: No
  Sender: FDA-Public Use
  Company Number: 05P-163-0286296-00

PATIENT
  Age: 57 Year
  Sex: Female

DRUGS (17)
  1. HUMIRA [Suspect]
     Indication: RHEUMATOID ARTHRITIS
     Dosage: 40 MG, 1 IN 2 WK, SUBCUTANEOUS;  40 MG, 1 IN 2 WK, SUBCUTANEOUS
     Route: 058
     Dates: start: 20040116, end: 20040301
  2. HUMIRA [Suspect]
     Indication: RHEUMATOID ARTHRITIS
     Dosage: 40 MG, 1 IN 2 WK, SUBCUTANEOUS;  40 MG, 1 IN 2 WK, SUBCUTANEOUS
     Route: 058
     Dates: start: 20040601, end: 20040901
  3. MELOXICAM [Concomitant]
  4. AMITRIPTYLINE HYDROCHLORIDE [Concomitant]
  5. SKELAXAN [Concomitant]
  6. LANSOPRAZOLE [Concomitant]
  7. FOLIC ACID [Concomitant]
  8. CETIRIZINE HCL [Concomitant]
  9. ALENDRONATE SODIUM [Concomitant]
  10. DYAZIDE [Concomitant]
  11. PREDNISONE TAB [Concomitant]
  12. AMLODIPINE BESYLATE [Concomitant]
  13. AMOXICILLIN TRIHYDRATE [Concomitant]
  14. SERETIDE MITE [Concomitant]
  15. FLUTICASONE PROPIONATE [Concomitant]
  16. AZELASTINE HCL [Concomitant]
  17. VIGAMOX [Concomitant]

REACTIONS (4)
  - ABDOMINAL PAIN [None]
  - HEPATIC ENZYME INCREASED [None]
  - HEPATIC FUNCTION ABNORMAL [None]
  - LIVER DISORDER [None]
